FAERS Safety Report 10717297 (Version 4)
Quarter: 2015Q4

REPORT INFORMATION
  Report Type: Spontaneous
  Country: DK (occurrence: DK)
  Receive Date: 20150116
  Receipt Date: 20151202
  Transmission Date: 20160304
  Serious: Yes (Hospitalization, Other)
  Sender: FDA-Public Use
  Company Number: DK-PFIZER INC-2015014184

PATIENT
  Age: 42 Year
  Sex: Female

DRUGS (7)
  1. LYRICA [Suspect]
     Active Substance: PREGABALIN
     Indication: PAIN
     Dosage: UNK
     Dates: end: 20130111
  2. NORITREN [Suspect]
     Active Substance: NORTRIPTYLINE HYDROCHLORIDE
     Indication: PAIN
     Dates: end: 20130111
  3. NORITREN [Suspect]
     Active Substance: NORTRIPTYLINE HYDROCHLORIDE
     Indication: FIBROMYALGIA
  4. NORITREN [Suspect]
     Active Substance: NORTRIPTYLINE HYDROCHLORIDE
     Indication: BACK PAIN
  5. LYRICA [Suspect]
     Active Substance: PREGABALIN
     Indication: FIBROMYALGIA
  6. AMITRIPTYLINE ^DAK^ [Suspect]
     Active Substance: AMITRIPTYLINE
     Indication: PAIN
     Dates: end: 20130111
  7. LYRICA [Suspect]
     Active Substance: PREGABALIN
     Indication: BACK PAIN

REACTIONS (6)
  - Cardiomyopathy [Recovered/Resolved]
  - Mental disorder [Unknown]
  - Chest pain [Recovered/Resolved]
  - Cardiac disorder [Recovered/Resolved]
  - Cardiac failure [Not Recovered/Not Resolved]
  - Supraventricular tachyarrhythmia [Recovered/Resolved]

NARRATIVE: CASE EVENT DATE: 201210
